FAERS Safety Report 10093788 (Version 1)
Quarter: 2014Q2

REPORT INFORMATION
  Report Type: Spontaneous
  Country: US (occurrence: US)
  Receive Date: 20140421
  Receipt Date: 20140421
  Transmission Date: 20141212
  Serious: No
  Sender: FDA-Public Use
  Company Number: US-SANOFI-AVENTIS-2013SA082527

PATIENT
  Age: 71 Year
  Sex: Male
  Weight: 99.79 kg

DRUGS (4)
  1. ALLEGRA [Suspect]
     Route: 048
  2. METFORMIN [Concomitant]
     Indication: DIABETES MELLITUS
     Route: 065
  3. GLIPIZIDE [Concomitant]
     Indication: DIABETES MELLITUS
     Route: 065
  4. NASACORT [Concomitant]
     Indication: HYPERSENSITIVITY
     Route: 065

REACTIONS (1)
  - Drug ineffective [Unknown]
